FAERS Safety Report 19615118 (Version 4)
Quarter: 2025Q2

REPORT INFORMATION
  Report Type: Report from Study
  Country: BR (occurrence: BR)
  Receive Date: 20210727
  Receipt Date: 20250603
  Transmission Date: 20250717
  Serious: Yes (Other)
  Sender: BIOGEN
  Company Number: BR-BIOGEN-2021BI01010358

PATIENT
  Age: 27 Year
  Sex: Female
  Weight: 68 kg

DRUGS (6)
  1. TYSABRI [Suspect]
     Active Substance: NATALIZUMAB
     Indication: Multiple sclerosis
     Route: 050
     Dates: start: 20170717, end: 202103
  2. TYSABRI [Suspect]
     Active Substance: NATALIZUMAB
     Route: 050
     Dates: start: 201707, end: 2022
  3. MECLIN [Concomitant]
     Indication: Nausea
     Route: 050
  4. ULTROGESTAN [Concomitant]
     Indication: Product used for unknown indication
     Route: 050
  5. OFOLATO [Concomitant]
     Indication: Product used for unknown indication
     Route: 050
  6. VITAMIN D [Concomitant]
     Active Substance: VITAMIN D NOS
     Indication: Multiple sclerosis
     Route: 050
     Dates: start: 2017

REACTIONS (3)
  - Abortion spontaneous [Recovered/Resolved]
  - Infection [Recovered/Resolved]
  - Maternal exposure during pregnancy [Recovered/Resolved]

NARRATIVE: CASE EVENT DATE: 20210601
